FAERS Safety Report 25529474 (Version 1)
Quarter: 2025Q3

REPORT INFORMATION
  Report Type: Report from Study
  Country: US (occurrence: US)
  Receive Date: 20250708
  Receipt Date: 20250708
  Transmission Date: 20251021
  Serious: Yes (Death, Disabling, Other)
  Sender: GILEAD
  Company Number: US-GILEAD-2025-0716931

PATIENT
  Age: 54 Year
  Sex: Male

DRUGS (4)
  1. AZTREONAM LYSINE [Suspect]
     Active Substance: AZTREONAM LYSINE
     Indication: Cystic fibrosis
     Dosage: 75 MG, TID (28 DAYS ON AND 28 DAYS OFF  )
     Route: 055
     Dates: start: 20240516
  2. MYCOPHENOLIC ACID [Concomitant]
     Active Substance: MYCOPHENOLIC ACID
  3. PREDNISONE [Concomitant]
     Active Substance: PREDNISONE
  4. TACROLIMUS [Concomitant]
     Active Substance: TACROLIMUS

REACTIONS (5)
  - Respiratory distress [Fatal]
  - Muscle atrophy [Unknown]
  - Movement disorder [Unknown]
  - Cystic fibrosis respiratory infection suppression [Unknown]
  - Sleep disorder [Unknown]
